FAERS Safety Report 8139688-0 (Version None)
Quarter: 2012Q1

REPORT INFORMATION
  Report Type: 
  Country: None (occurrence: None)
  Receive Date: 20120215
  Receipt Date: 20120210
  Transmission Date: 20120608
  Serious: Yes (Other)
  Sender: FDA-Public Use
  Company Number: PHFR2011GB006943

PATIENT
  Age: 27 Year
  Sex: Female
  Weight: 61 kg

DRUGS (3)
  1. FOLIC ACID [Concomitant]
  2. CARBAMAZEPINE [Suspect]
     Dosage: 800 MG, QD
  3. SERTRALINE HYDROCHLORIDE [Concomitant]

REACTIONS (2)
  - TRAUMATIC DELIVERY [None]
  - MATERNAL EXPOSURE DURING PREGNANCY [None]
